FAERS Safety Report 9031924 (Version 3)
Quarter: 2013Q4

REPORT INFORMATION
  Report Type: Report from Study
  Country: US (occurrence: US)
  Receive Date: 20130125
  Receipt Date: 20131112
  Transmission Date: 20140711
  Serious: Yes (Hospitalization)
  Sender: FDA-Public Use
  Company Number: US-ELI_LILLY_AND_COMPANY-US201212000429

PATIENT
  Age: 55 Year
  Sex: Female
  Weight: 71.66 kg

DRUGS (4)
  1. TERIPARATIDE [Suspect]
     Indication: OSTEOPOROSIS
     Dosage: 20 UNK, UNK
     Route: 058
     Dates: start: 201201
  2. TERIPARATIDE [Suspect]
     Dosage: 20 UG, QD
     Route: 058
  3. TERIPARATIDE [Suspect]
     Dosage: 20 UG, QD
     Route: 058
  4. HYDROCHLOROTHIAZIDE [Concomitant]
     Indication: URINE CALCIUM INCREASED
     Route: 065

REACTIONS (8)
  - Hernia [Recovered/Resolved]
  - Haematoma [Unknown]
  - Dizziness [Recovered/Resolved]
  - Pain [Not Recovered/Not Resolved]
  - Asthenia [Unknown]
  - Urine calcium increased [Recovered/Resolved]
  - Foot fracture [Unknown]
  - Foot fracture [Unknown]
